FAERS Safety Report 8800479 (Version 2)
Quarter: 2012Q4

REPORT INFORMATION
  Report Type: 
  Country: MX (occurrence: MX)
  Receive Date: 20120921
  Receipt Date: 20121101
  Transmission Date: 20130627
  Serious: Yes (Hospitalization)
  Sender: FDA-Public Use
  Company Number: PHHY2012MX081044

PATIENT
  Age: 18 Year
  Sex: Male

DRUGS (3)
  1. TEGRETOL [Suspect]
     Indication: CYST
     Dosage: 3 DF,(3 tablets of 400 mg) daily
     Route: 048
  2. KEPPRA [Concomitant]
     Dosage: 2 tablets daily
     Route: 048
     Dates: start: 2009
  3. LIBETRAM [Concomitant]
     Indication: CONVULSION
     Dosage: 2 DF (2 tablets daily )
     Route: 048
     Dates: start: 2009

REACTIONS (2)
  - Convulsion [Not Recovered/Not Resolved]
  - Urinary tract infection [Not Recovered/Not Resolved]
